FAERS Safety Report 10969111 (Version 1)
Quarter: 2015Q1

REPORT INFORMATION
  Report Type: Spontaneous
  Country: CH (occurrence: CH)
  Receive Date: 20150331
  Receipt Date: 20150331
  Transmission Date: 20150721
  Serious: Yes (Hospitalization)
  Sender: FDA-Public Use
  Company Number: CH-ROCHE-1556233

PATIENT
  Age: 71 Year
  Sex: Male

DRUGS (7)
  1. ROCEPHIN [Suspect]
     Active Substance: CEFTRIAXONE SODIUM
     Indication: PERITONITIS BACTERIAL
     Route: 065
     Dates: start: 201501, end: 20150123
  2. PANTOPRAZOLE [Concomitant]
     Active Substance: PANTOPRAZOLE SODIUM
     Route: 065
  3. ALDACTONE [Suspect]
     Active Substance: SPIRONOLACTONE
     Indication: PRODUCT USED FOR UNKNOWN INDICATION
     Route: 048
     Dates: end: 201501
  4. DUPHALAC [Concomitant]
     Active Substance: LACTULOSE
     Route: 065
  5. KONAKION [Concomitant]
     Active Substance: PHYTONADIONE
     Route: 065
  6. NEO CITRAN (SWITZERLAND) [Suspect]
     Active Substance: ACETAMINOPHEN\ASCORBIC ACID\PHENIRAMINE\PHENYLEPHRINE
     Indication: PRODUCT USED FOR UNKNOWN INDICATION
     Route: 065
     Dates: end: 201501
  7. TORASEMIDE [Suspect]
     Active Substance: TORSEMIDE
     Indication: PRODUCT USED FOR UNKNOWN INDICATION
     Route: 048
     Dates: end: 201501

REACTIONS (6)
  - Jaundice [Recovering/Resolving]
  - Drug-induced liver injury [Recovering/Resolving]
  - Hepatorenal syndrome [Recovering/Resolving]
  - Hypoalbuminaemia [Recovering/Resolving]
  - Hepatic cirrhosis [Recovering/Resolving]
  - Ascites [Recovering/Resolving]

NARRATIVE: CASE EVENT DATE: 201501
